FAERS Safety Report 23423340 (Version 2)
Quarter: 2024Q1

REPORT INFORMATION
  Report Type: Spontaneous
  Country: US (occurrence: US)
  Receive Date: 20240119
  Receipt Date: 20240325
  Transmission Date: 20240410
  Serious: Yes (Hospitalization, Other)
  Sender: FDA-Public Use
  Company Number: US-Kiniksa Pharmaceuticals Ltd.-2023KPU000562

PATIENT
  Age: 38 Year
  Sex: Female

DRUGS (1)
  1. ARCALYST [Suspect]
     Active Substance: RILONACEPT
     Indication: Pericarditis
     Route: 058
     Dates: start: 20230316, end: 20240221

REACTIONS (12)
  - Gastrointestinal haemorrhage [Unknown]
  - Deep vein thrombosis [Unknown]
  - Faeces discoloured [Unknown]
  - Anxiety [Unknown]
  - Insomnia [Unknown]
  - Panic reaction [Unknown]
  - Overdose [Unknown]
  - Erythema [Unknown]
  - Anxiety [Unknown]
  - Nervousness [Unknown]
  - Fear [Unknown]
  - Infectious mononucleosis [Unknown]

NARRATIVE: CASE EVENT DATE: 20230401
